FAERS Safety Report 5043018-0 (Version None)
Quarter: 2006Q2

REPORT INFORMATION
  Report Type: 
  Country: None (occurrence: None)
  Receive Date: 20060627
  Receipt Date: 20060615
  Transmission Date: 20061013
  Serious: Yes (Death)
  Sender: FDA-Public Use
  Company Number: GXKR2006CA03441

PATIENT
  Age: 67 Year
  Sex: Female

DRUGS (1)
  1. MIRTAZAPINE [Suspect]
     Indication: DEPRESSION
     Dosage: 30 MG

REACTIONS (7)
  - ASPHYXIA [None]
  - DROWNING [None]
  - DRUG TOXICITY [None]
  - HEPATIC NECROSIS [None]
  - HEPATOTOXICITY [None]
  - OVERDOSE [None]
  - SEDATION [None]
